FAERS Safety Report 6719256-5 (Version None)
Quarter: 2010Q2

REPORT INFORMATION
  Report Type: 
  Country: None (occurrence: None)
  Receive Date: 20100511
  Receipt Date: 20100428
  Transmission Date: 20101027
  Serious: Yes (Hospitalization)
  Sender: FDA-Public Use
  Company Number: JP-SANOFI-AVENTIS-2010SA019326

PATIENT
  Age: 63 Year
  Sex: Male
  Weight: 65 kg

DRUGS (9)
  1. ARAVA [Suspect]
     Indication: RHEUMATOID ARTHRITIS
     Route: 048
     Dates: start: 20090115, end: 20090211
  2. CANDESARTAN CILEXETIL [Concomitant]
     Indication: CARDIAC FAILURE
     Route: 048
  3. NOVORAPID [Concomitant]
     Indication: DIABETES MELLITUS
     Route: 058
  4. PREDONINE [Concomitant]
     Indication: RHEUMATOID ARTHRITIS
     Route: 048
  5. PROGRAF [Concomitant]
     Indication: RHEUMATOID ARTHRITIS
     Route: 048
  6. VOLTAREN [Concomitant]
     Indication: RHEUMATOID ARTHRITIS
     Route: 048
     Dates: end: 20090203
  7. MUCOSTA [Concomitant]
     Indication: PROPHYLAXIS
     Route: 048
     Dates: end: 20090203
  8. URSO 250 [Concomitant]
     Indication: HEPATITIS B
     Route: 048
  9. NEUROTROPIN [Concomitant]
     Indication: NERVE ROOT INJURY CERVICAL

REACTIONS (2)
  - DIARRHOEA [None]
  - HYPERKALAEMIA [None]
